FAERS Safety Report 6299513-X (Version None)
Quarter: 2009Q3

REPORT INFORMATION
  Report Type: 
  Country: None (occurrence: None)
  Receive Date: 20090806
  Receipt Date: 20090730
  Transmission Date: 20100115
  Serious: Yes (Other)
  Sender: FDA-Public Use
  Company Number: BR-ASTRAZENECA-2009UW21668

PATIENT
  Age: 59 Year
  Sex: Male

DRUGS (5)
  1. SELOZOK [Suspect]
     Indication: HYPERTENSION
     Route: 048
     Dates: start: 20090301
  2. ASPIRIN [Concomitant]
     Route: 048
     Dates: start: 20090301
  3. AMLODIPINE [Concomitant]
     Route: 048
     Dates: start: 20090301
  4. BRAVACETINA [Concomitant]
     Route: 048
     Dates: start: 20090301
  5. ENALAPRIL MALEATE [Concomitant]
     Route: 048
     Dates: start: 20090301

REACTIONS (2)
  - AORTIC ANEURYSM [None]
  - TOOTH INFECTION [None]
